FAERS Safety Report 25843651 (Version 2)
Quarter: 2025Q4

REPORT INFORMATION
  Report Type: Report from Study
  Country: KR (occurrence: KR)
  Receive Date: 20250924
  Receipt Date: 20251002
  Transmission Date: 20260119
  Serious: Yes (Death)
  Sender: SUNOVION
  Company Number: KR-sptaiwan-2025SMP008405

PATIENT
  Age: 53 Year
  Sex: Male
  Weight: 72.8 kg

DRUGS (1)
  1. LATUDA [Suspect]
     Active Substance: LURASIDONE HYDROCHLORIDE
     Indication: Schizophrenia
     Dosage: 80 MG, BID
     Route: 048
     Dates: start: 20250714, end: 20250724

REACTIONS (2)
  - Acute myocardial infarction [Fatal]
  - Off label use [Unknown]

NARRATIVE: CASE EVENT DATE: 20250714
